FAERS Safety Report 8142583-4 (Version None)
Quarter: 2012Q1

REPORT INFORMATION
  Report Type: 
  Country: None (occurrence: None)
  Receive Date: 20120216
  Receipt Date: 20120210
  Transmission Date: 20120608
  Serious: Yes (Death)
  Sender: FDA-Public Use
  Company Number: US-BAYER-2012-014220

PATIENT
  Sex: Female

DRUGS (1)
  1. ALKA-SELTZER PLUS COLD SPARKLING ORIGINAL [Suspect]
     Indication: NASOPHARYNGITIS
     Dosage: UNK
     Route: 048

REACTIONS (1)
  - HAEMORRHAGIC STROKE [None]
